FAERS Safety Report 5242329-3 (Version None)
Quarter: 2007Q1

REPORT INFORMATION
  Report Type: 
  Country: None (occurrence: None)
  Receive Date: 20070221
  Receipt Date: 20070213
  Transmission Date: 20070707
  Serious: Yes (Death, Hospitalization)
  Sender: FDA-Public Use
  Company Number: HQWYE482304JAN07

PATIENT
  Sex: Male

DRUGS (7)
  1. ANCARON [Suspect]
     Indication: VENTRICULAR TACHYCARDIA
     Route: 048
     Dates: start: 20060516, end: 20060618
  2. ANCARON [Suspect]
     Route: 048
     Dates: start: 20060619, end: 20061030
  3. ANCARON [Suspect]
     Route: 048
     Dates: start: 20061101, end: 20061223
  4. SIGMART [Concomitant]
     Indication: ANGINA PECTORIS
     Route: 048
     Dates: start: 20060406, end: 20061223
  5. ASPIRIN [Concomitant]
     Indication: ANGINA PECTORIS
     Route: 048
     Dates: start: 20030804, end: 20061223
  6. TICLOPIDINE HCL [Suspect]
     Indication: ANGINA PECTORIS
     Route: 048
     Dates: start: 20060525, end: 20061223
  7. HERBESSER [Concomitant]
     Indication: ANGINA PECTORIS
     Route: 048
     Dates: start: 20030804, end: 20061223

REACTIONS (1)
  - INTERSTITIAL LUNG DISEASE [None]
